FAERS Safety Report 12405724 (Version 1)
Quarter: 2016Q2

REPORT INFORMATION
  Report Type: Spontaneous
  Country: US (occurrence: None)
  Receive Date: 20160525
  Receipt Date: 20160525
  Transmission Date: 20160815
  Serious: Yes (Other)
  Sender: FDA-Public Use
  Company Number: None

PATIENT
  Age: 40 Year
  Sex: Female
  Weight: 56.7 kg

DRUGS (11)
  1. IBUPROPHEN [Concomitant]
     Active Substance: IBUPROFEN
  2. SULFAMETHOXAZOLE-E TMP [Suspect]
     Active Substance: SULFAMETHOXAZOLE\TRIMETHOPRIM
     Indication: CONJUNCTIVITIS
     Route: 048
     Dates: start: 20160520, end: 20160523
  3. VITAMIN CODE [Concomitant]
  4. ZANAFLEX [Concomitant]
     Active Substance: TIZANIDINE HYDROCHLORIDE
  5. WHOLE FOOD IRON [Concomitant]
  6. PERCOCET [Concomitant]
     Active Substance: ACETAMINOPHEN\OXYCODONE HYDROCHLORIDE
  7. GENTAMYCIN [Suspect]
     Active Substance: GENTAMICIN
     Indication: CONJUNCTIVITIS
     Route: 031
     Dates: start: 20160520, end: 20160523
  8. VISTARIL [Concomitant]
     Active Substance: HYDROXYZINE PAMOATE
  9. BACK BRACE [Concomitant]
  10. XANAX [Concomitant]
     Active Substance: ALPRAZOLAM
  11. RAW IRON [Concomitant]

REACTIONS (7)
  - Oropharyngeal pain [None]
  - Fungal infection [None]
  - Photophobia [None]
  - Drug ineffective [None]
  - Chest pain [None]
  - Dysphagia [None]
  - Dysuria [None]

NARRATIVE: CASE EVENT DATE: 20160521
